FAERS Safety Report 7047761-3 (Version None)
Quarter: 2010Q4

REPORT INFORMATION
  Report Type: 
  Country: None (occurrence: None)
  Receive Date: 20101015
  Receipt Date: 20101005
  Transmission Date: 20110411
  Serious: Yes (Other)
  Sender: FDA-Public Use
  Company Number: US-PFIZER INC-2010127066

PATIENT
  Sex: Male
  Weight: 165.53 kg

DRUGS (9)
  1. LIPITOR [Suspect]
     Indication: ANGIOPLASTY
     Dosage: 40 MG, DAILY
     Route: 048
     Dates: start: 20100518, end: 20100901
  2. BENAZEPRIL [Concomitant]
     Dosage: 40 MG, UNK
  3. ATENOLOL [Concomitant]
     Dosage: 100 MG, UNK
  4. HYDROCHLOROTHIAZIDE [Concomitant]
     Dosage: 25 MG, UNK
  5. PLAVIX [Concomitant]
     Dosage: 75 MG, UNK
  6. NORVASC [Concomitant]
     Dosage: 10 MG, UNK
  7. HYDRALAZINE [Concomitant]
     Dosage: 25 MG, 2X/DAY
  8. OMEPRAZOLE [Concomitant]
     Dosage: UNK
  9. VITAMINS [Concomitant]
     Dosage: UNK

REACTIONS (3)
  - GOUT [None]
  - LABORATORY TEST ABNORMAL [None]
  - RENAL DISORDER [None]
